FAERS Safety Report 13297976 (Version 1)
Quarter: 2017Q1

REPORT INFORMATION
  Report Type: Spontaneous
  Country: GB (occurrence: GB)
  Receive Date: 20170306
  Receipt Date: 20170306
  Transmission Date: 20170428
  Serious: Yes (Other)
  Sender: FDA-Public Use
  Company Number: GB-AUROBINDO-AUR-APL-2017-30227

PATIENT
  Age: 26 Year
  Sex: Female
  Weight: 48 kg

DRUGS (3)
  1. METRONIDAZOLE. [Suspect]
     Active Substance: METRONIDAZOLE
     Indication: ABDOMINAL DISCOMFORT
     Dosage: 400 MG, TWO TIMES A DAY
     Route: 048
     Dates: start: 20170131, end: 20170207
  2. OMEPRAZOLE. [Concomitant]
     Active Substance: OMEPRAZOLE
     Indication: PRODUCT USED FOR UNKNOWN INDICATION
     Route: 065
  3. AMOXICILLIN. [Suspect]
     Active Substance: AMOXICILLIN
     Indication: ABDOMINAL DISCOMFORT
     Dosage: 500 MG, 3 TIMES A DAY
     Route: 048
     Dates: start: 20170131, end: 20170207

REACTIONS (4)
  - Paraesthesia [Recovering/Resolving]
  - Respiratory rate increased [Unknown]
  - Asthenia [Unknown]
  - Diarrhoea [Recovering/Resolving]

NARRATIVE: CASE EVENT DATE: 20170131
